FAERS Safety Report 8887019 (Version 1)
Quarter: 2012Q4

REPORT INFORMATION
  Report Type: 
  Country: BR (occurrence: BR)
  Receive Date: 20121105
  Receipt Date: 20121105
  Transmission Date: 20130627
  Serious: Yes (Other)
  Sender: FDA-Public Use
  Company Number: PHHY2012BR097575

PATIENT
  Age: 50 Year
  Sex: Female

DRUGS (4)
  1. ONBREZ [Suspect]
     Indication: DYSPNOEA
     Dosage: 150 ug, QD
     Route: 048
     Dates: start: 201206
  2. BAMIFIX [Concomitant]
     Indication: ASTHMA
     Dosage: 300 mg, QD
     Route: 048
  3. ALENIA [Concomitant]
     Indication: ASTHMA
     Route: 048
  4. ALENIA [Concomitant]
     Indication: DYSPNOEA

REACTIONS (3)
  - Tachycardia [Recovered/Resolved]
  - Discomfort [Recovered/Resolved]
  - Incorrect route of drug administration [Unknown]
